FAERS Safety Report 8739777 (Version 2)
Quarter: 2013Q4

REPORT INFORMATION
  Report Type: Spontaneous
  Country: US (occurrence: US)
  Receive Date: 20120823
  Receipt Date: 20131101
  Transmission Date: 20140711
  Serious: No
  Sender: FDA-Public Use
  Company Number: US-009507513-1208USA000307

PATIENT
  Age: 17 Year
  Sex: Female
  Weight: 51.7 kg

DRUGS (1)
  1. IMPLANON [Suspect]
     Indication: CONTRACEPTION
     Dosage: UNK
     Route: 059
     Dates: start: 20120227

REACTIONS (5)
  - Vaginal odour [Unknown]
  - Metrorrhagia [Unknown]
  - Amenorrhoea [Unknown]
  - Weight decreased [Unknown]
  - Flatulence [Unknown]
